FAERS Safety Report 6903794-6 (Version None)
Quarter: 2010Q3

REPORT INFORMATION
  Report Type: 
  Country: None (occurrence: None)
  Receive Date: 20100804
  Receipt Date: 20081202
  Transmission Date: 20110219
  Serious: No
  Sender: FDA-Public Use
  Company Number: US-PFIZER INC-2008101426

PATIENT
  Sex: Female
  Weight: 82.727 kg

DRUGS (7)
  1. LYRICA [Suspect]
     Indication: DIABETIC NEUROPATHY
     Dates: start: 20081101, end: 20081201
  2. NPH INSULIN [Concomitant]
  3. HUMALOG [Concomitant]
  4. VALSARTAN [Concomitant]
  5. ALLEGRA [Concomitant]
  6. HYDROCHLOROTHIAZIDE [Concomitant]
  7. ZOCOR [Concomitant]

REACTIONS (2)
  - DIZZINESS [None]
  - SOMNOLENCE [None]
